FAERS Safety Report 14274806 (Version 1)
Quarter: 2017Q4

REPORT INFORMATION
  Report Type: Spontaneous
  Country: SE (occurrence: SE)
  Receive Date: 20171212
  Receipt Date: 20171212
  Transmission Date: 20180321
  Serious: Yes (Hospitalization)
  Sender: FDA-Public Use
  Company Number: SE-MYLANLABS-2017M1077050

PATIENT
  Age: 44 Year
  Sex: Male
  Weight: 76 kg

DRUGS (3)
  1. SINALFA 5 MG TABLETT [Suspect]
     Active Substance: TERAZOSIN HYDROCHLORIDE
     Indication: PROSTATITIS
     Dosage: 5 MG X1
     Dates: start: 20170928, end: 20171115
  2. DICLOFENAC [Suspect]
     Active Substance: DICLOFENAC
     Indication: PROSTATITIS
     Dosage: 25 MG,
     Dates: start: 20170928, end: 20171115
  3. IDOTRIM [Concomitant]
     Indication: PROSTATITIS
     Dosage: UNK

REACTIONS (1)
  - Palpitations [Recovering/Resolving]

NARRATIVE: CASE EVENT DATE: 20170929
